FAERS Safety Report 11370767 (Version 1)
Quarter: 2015Q3

REPORT INFORMATION
  Report Type: Spontaneous
  Country: US (occurrence: US)
  Receive Date: 20150812
  Receipt Date: 20150812
  Transmission Date: 20151125
  Serious: No
  Sender: FDA-Public Use
  Company Number: US-ASTRAZENECA-2015SE75291

PATIENT
  Sex: Female

DRUGS (1)
  1. PRILOSEC OTC [Suspect]
     Active Substance: OMEPRAZOLE MAGNESIUM
     Dosage: TOOK FIVE PILLS IN ABOUT TWO DAYS
     Route: 048

REACTIONS (4)
  - Vomiting [Unknown]
  - Overdose [Unknown]
  - Product use issue [Unknown]
  - Nausea [Unknown]
